FAERS Safety Report 18703525 (Version 1)
Quarter: 2021Q1

REPORT INFORMATION
  Report Type: Spontaneous
  Country: CH (occurrence: CH)
  Receive Date: 20210105
  Receipt Date: 20210105
  Transmission Date: 20210419
  Serious: Yes (Other)
  Sender: FDA-Public Use
  Company Number: CH-009507513-2012CHE012453

PATIENT
  Age: 73 Year
  Sex: Female

DRUGS (16)
  1. ATORVASTATIN [Suspect]
     Active Substance: ATORVASTATIN
     Dosage: 40 MILLIGRAM, QD
     Route: 048
     Dates: end: 202001
  2. ZOLPIDEM [Concomitant]
     Active Substance: ZOLPIDEM TARTRATE
     Route: 048
     Dates: start: 20200928
  3. REMERON [Suspect]
     Active Substance: MIRTAZAPINE
     Dosage: 15 MILLIGRAM, QD
     Route: 048
     Dates: start: 20200102, end: 20200131
  4. ROSUVASTATIN CALCIUM. [Suspect]
     Active Substance: ROSUVASTATIN CALCIUM
     Dosage: 5 MILLIGRAM, QD
     Route: 048
     Dates: start: 20200306
  5. BRILIQUE [Concomitant]
     Active Substance: TICAGRELOR
     Dates: end: 202001
  6. MICARDIS AMLO [Suspect]
     Active Substance: AMLODIPINE BESYLATE\TELMISARTAN
     Dosage: UNK, QD
     Route: 048
     Dates: start: 20200103
  7. NICOTELL TTS [Concomitant]
     Dates: end: 202001
  8. REMERON [Suspect]
     Active Substance: MIRTAZAPINE
     Dosage: 30 MILLIGRAM
     Route: 048
     Dates: start: 20200131
  9. CIRCADIN [Concomitant]
     Active Substance: MELATONIN
     Dates: end: 202001
  10. IMOVANE [Concomitant]
     Active Substance: ZOPICLONE
     Dates: end: 202001
  11. ULTIBRO BREEZEHALER [Concomitant]
     Active Substance: GLYCOPYRRONIUM\INDACATEROL
     Dates: start: 20200728
  12. PRAMIPEXOLE. [Concomitant]
     Active Substance: PRAMIPEXOLE
     Route: 048
     Dates: start: 20200922
  13. ASPIRIN CARDIO [Concomitant]
     Active Substance: ASPIRIN
     Route: 048
     Dates: start: 201910
  14. BELOC?ZOK [Concomitant]
     Active Substance: METOPROLOL SUCCINATE
     Route: 048
     Dates: start: 20200922
  15. TEMESTA [Concomitant]
     Dosage: IF NECESSARY
     Route: 048
     Dates: start: 202009
  16. SERTRALINE HYDROCHLORIDE. [Concomitant]
     Active Substance: SERTRALINE HYDROCHLORIDE
     Dates: end: 202001

REACTIONS (2)
  - Feeding disorder [Not Recovered/Not Resolved]
  - Dysgeusia [Not Recovered/Not Resolved]

NARRATIVE: CASE EVENT DATE: 202001
